FAERS Safety Report 8502998-9 (Version None)
Quarter: 2012Q3

REPORT INFORMATION
  Report Type: 
  Country: None (occurrence: None)
  Receive Date: 20120711
  Receipt Date: 20120706
  Transmission Date: 20120928
  Serious: Yes (Hospitalization)
  Sender: FDA-Public Use
  Company Number: PHHO2012US008621

PATIENT
  Sex: Female
  Weight: 24.6 kg

DRUGS (6)
  1. AFINITOR [Suspect]
     Dosage: DOUBLE BLINDED
     Dates: start: 20120620
  2. BLINDED NO TREATMENT RECEIVED [Suspect]
     Indication: TUBEROUS SCLEROSIS
     Dosage: DOUBLE BLINDED
     Dates: start: 20120322, end: 20120603
  3. PLACEBO [Suspect]
     Indication: TUBEROUS SCLEROSIS
     Dosage: DOUBLE BLINDED
     Dates: start: 20120322, end: 20120603
  4. BLINDED NO TREATMENT RECEIVED [Suspect]
     Dosage: DOUBLE BLINDED
     Dates: start: 20120620
  5. AFINITOR [Suspect]
     Indication: TUBEROUS SCLEROSIS
     Dosage: DOUBLE BLINDED
     Dates: start: 20120322, end: 20120603
  6. PLACEBO [Suspect]
     Dosage: DOUBLE BLINDED
     Dates: start: 20120620

REACTIONS (2)
  - PYELONEPHRITIS [None]
  - SEPSIS [None]
